FAERS Safety Report 6891092-9 (Version None)
Quarter: 2010Q3

REPORT INFORMATION
  Report Type: 
  Country: None (occurrence: None)
  Receive Date: 20100731
  Receipt Date: 20090524
  Transmission Date: 20110219
  Serious: No
  Sender: FDA-Public Use
  Company Number: US-PFIZER INC-2009182738

PATIENT
  Sex: Male

DRUGS (4)
  1. LIPITOR [Suspect]
  2. ISUPREL [Suspect]
  3. PLAVIX [Suspect]
  4. CARDIOVASCULAR SYSTEM DRUGS [Suspect]

REACTIONS (1)
  - CONSTIPATION [None]
